FAERS Safety Report 8550018-2 (Version None)
Quarter: 2012Q3

REPORT INFORMATION
  Report Type: 
  Country: None (occurrence: None)
  Receive Date: 20120730
  Receipt Date: 20120720
  Transmission Date: 20120928
  Serious: Yes (Hospitalization)
  Sender: FDA-Public Use
  Company Number: US-JNJFOC-20120205615

PATIENT
  Sex: Male
  Weight: 47 kg

DRUGS (18)
  1. FOLIC ACID [Concomitant]
  2. ALLEGRA [Concomitant]
  3. SINGULAIR [Concomitant]
  4. TPN [Concomitant]
  5. LACTOBACILLUS ACIDOPHILUS [Concomitant]
  6. PREDNISONE [Concomitant]
  7. REMICADE [Suspect]
     Indication: COLITIS ULCERATIVE
     Route: 042
     Dates: start: 20100722
  8. MESALAMINE [Concomitant]
  9. MERCAPTOPURINE [Concomitant]
  10. MELATONIN [Concomitant]
  11. HUMIRA [Concomitant]
     Dates: start: 20100930, end: 20110809
  12. HYDROCORTISONE [Concomitant]
     Indication: INFLAMMATORY BOWEL DISEASE
  13. IRON [Concomitant]
  14. VANCOMYCIN [Concomitant]
  15. PROBIOTICS [Concomitant]
  16. ZOSYN [Concomitant]
  17. OMEPRAZOLE [Concomitant]
  18. PEPCID [Concomitant]

REACTIONS (2)
  - PROCTITIS [None]
  - PERITONITIS [None]
